FAERS Safety Report 10273966 (Version 2)
Quarter: 2014Q3

REPORT INFORMATION
  Report Type: Spontaneous
  Country: BR (occurrence: BR)
  Receive Date: 20140702
  Receipt Date: 20140715
  Transmission Date: 20150326
  Serious: Yes (Other)
  Sender: FDA-Public Use
  Company Number: BR-BRISTOL-MYERS SQUIBB COMPANY-21087267

PATIENT
  Age: 68 Year
  Sex: Male

DRUGS (6)
  1. METFORMIN HCL [Suspect]
     Active Substance: METFORMIN HYDROCHLORIDE
     Indication: DIABETES MELLITUS
     Route: 048
     Dates: start: 1999
  2. INSULIN [Concomitant]
     Active Substance: INSULIN NOS
     Indication: DIABETES MELLITUS
     Route: 058
     Dates: start: 1999
  3. NAPROXEN. [Suspect]
     Active Substance: NAPROXEN
     Indication: LOWER LIMB FRACTURE
     Dosage: VIMOVO?1DF= 500MG + 20MG?INT ON 19JUN2014
     Dates: start: 20140616, end: 20140619
  4. CARBOLITIUM [Concomitant]
     Active Substance: LITHIUM CARBONATE
     Indication: PARKINSON^S DISEASE
     Route: 048
     Dates: start: 201403
  5. ESOMEPRAZOLE [Suspect]
     Active Substance: ESOMEPRAZOLE
     Indication: LOWER LIMB FRACTURE
     Dosage: VIMOVO?1DF= 500MG + 20MG?INT ON 19JUN2014
     Dates: start: 20140616
  6. PROLOPA [Concomitant]
     Active Substance: BENSERAZIDE\LEVODOPA
     Indication: PARKINSON^S DISEASE
     Route: 048

REACTIONS (5)
  - Parkinson^s disease [Recovering/Resolving]
  - Diarrhoea [Not Recovered/Not Resolved]
  - Malaise [Not Recovered/Not Resolved]
  - Lower limb fracture [Recovering/Resolving]
  - Insomnia [Not Recovered/Not Resolved]

NARRATIVE: CASE EVENT DATE: 201403
